FAERS Safety Report 24380140 (Version 1)
Quarter: 2024Q3

REPORT INFORMATION
  Report Type: Spontaneous
  Country: DE (occurrence: DE)
  Receive Date: 20240930
  Receipt Date: 20240930
  Transmission Date: 20241017
  Serious: Yes (Death, Life-Threatening, Hospitalization, Disabling, Other)
  Sender: ORGANON
  Company Number: DE-SANDOZ-SDZ2024DE075550

PATIENT
  Age: 80 Year
  Sex: Male
  Weight: 69 kg

DRUGS (86)
  1. SIMVASTATIN [Suspect]
     Active Substance: SIMVASTATIN
     Indication: Blood cholesterol increased
     Dosage: UNK
     Route: 048
  2. SIMVASTATIN [Suspect]
     Active Substance: SIMVASTATIN
     Indication: Vitamin supplementation
     Dosage: UNK
     Route: 048
  3. SIMVASTATIN [Suspect]
     Active Substance: SIMVASTATIN
     Indication: Product used for unknown indication
     Dosage: UNK
     Route: 065
  4. SIMVASTATIN [Suspect]
     Active Substance: SIMVASTATIN
     Indication: Off label use
     Dosage: 40 MG, QD
     Route: 048
  5. SIMVASTATIN [Suspect]
     Active Substance: SIMVASTATIN
     Dosage: 40 MG, QD
     Route: 048
  6. CEFTRIAXONE [Suspect]
     Active Substance: CEFTRIAXONE\CEFTRIAXONE SODIUM
     Indication: Product used for unknown indication
     Dosage: 2 G
     Route: 042
  7. CEFTRIAXONE [Suspect]
     Active Substance: CEFTRIAXONE\CEFTRIAXONE SODIUM
     Indication: Bacterial infection
     Dosage: 2 GRAM, QD, (CEFTRIAXONE SODIUM, DOSAGE TEXT: THERAPY START DATE ASKU, THERAPY END DATE ASKU)
     Route: 042
  8. CEFTRIAXONE [Suspect]
     Active Substance: CEFTRIAXONE\CEFTRIAXONE SODIUM
     Dosage: UNK
     Route: 042
  9. CEFTRIAXONE [Suspect]
     Active Substance: CEFTRIAXONE\CEFTRIAXONE SODIUM
     Dosage: 2 G, QD
     Route: 042
  10. CEFTRIAXONE [Suspect]
     Active Substance: CEFTRIAXONE\CEFTRIAXONE SODIUM
     Dosage: UNK
     Route: 042
  11. CEFTRIAXONE [Suspect]
     Active Substance: CEFTRIAXONE\CEFTRIAXONE SODIUM
     Dosage: UNK
     Route: 042
  12. CEFTRIAXONE [Suspect]
     Active Substance: CEFTRIAXONE\CEFTRIAXONE SODIUM
     Dosage: 2 G
     Route: 042
  13. CEFTRIAXONE [Suspect]
     Active Substance: CEFTRIAXONE\CEFTRIAXONE SODIUM
     Dosage: 2 MG
     Route: 042
  14. CEFTRIAXONE [Suspect]
     Active Substance: CEFTRIAXONE\CEFTRIAXONE SODIUM
     Dosage: QD
     Route: 042
  15. METAMIZOLE SODIUM [Suspect]
     Active Substance: METAMIZOLE SODIUM
     Indication: Intentional product misuse
     Dosage: 5 MG, QD
     Route: 042
  16. METAMIZOLE SODIUM [Suspect]
     Active Substance: METAMIZOLE SODIUM
     Indication: Vitamin supplementation
  17. GABAPENTIN [Suspect]
     Active Substance: GABAPENTIN
     Indication: Product used for unknown indication
     Dosage: 10 MG, QD
     Route: 048
  18. GABAPENTIN [Suspect]
     Active Substance: GABAPENTIN
     Indication: Bacterial infection
     Dosage: 100 MILLIGRAM, QD, (DOSAGE TEXT: THERAPY START DATE ASKU, THERAPY END DATE ASKU)
     Route: 048
  19. GABAPENTIN [Suspect]
     Active Substance: GABAPENTIN
     Indication: Intentional product misuse
     Dosage: UNK
     Route: 048
  20. GABAPENTIN [Suspect]
     Active Substance: GABAPENTIN
     Indication: Neuralgia
     Dosage: 100 MG, QD
     Route: 048
  21. GABAPENTIN [Suspect]
     Active Substance: GABAPENTIN
     Indication: Off label use
     Dosage: UNK
     Route: 048
  22. LANSOPRAZOLE [Suspect]
     Active Substance: LANSOPRAZOLE
     Indication: Off label use
     Dosage: 30 MG, QD
     Route: 048
  23. LANSOPRAZOLE [Suspect]
     Active Substance: LANSOPRAZOLE
     Indication: Intentional product misuse
     Dosage: 30 MG, QD
     Route: 048
  24. LANSOPRAZOLE [Suspect]
     Active Substance: LANSOPRAZOLE
     Indication: Product used for unknown indication
     Dosage: 30 MG, QD
     Route: 048
  25. LANSOPRAZOLE [Suspect]
     Active Substance: LANSOPRAZOLE
     Indication: Antacid therapy
     Dosage: 30 MG, QD
     Route: 048
  26. LANSOPRAZOLE [Suspect]
     Active Substance: LANSOPRAZOLE
     Dosage: 30 MG, QD
     Route: 048
  27. LANSOPRAZOLE [Suspect]
     Active Substance: LANSOPRAZOLE
     Dosage: UNK
     Route: 065
  28. HYDROMORPHONE [Suspect]
     Active Substance: HYDROMORPHONE
     Indication: Analgesic therapy
     Dosage: 1 MG
     Route: 058
  29. HYDROMORPHONE [Suspect]
     Active Substance: HYDROMORPHONE
     Indication: Product used for unknown indication
     Dosage: 6 MG
     Route: 058
  30. HYDROMORPHONE [Suspect]
     Active Substance: HYDROMORPHONE
     Dosage: 250 MG, QD
     Route: 042
  31. HYDROMORPHONE [Suspect]
     Active Substance: HYDROMORPHONE
     Dosage: 1 MG
     Route: 058
  32. HYDROMORPHONE [Suspect]
     Active Substance: HYDROMORPHONE
     Dosage: 6 MG, QID
     Route: 058
  33. HYDROMORPHONE [Suspect]
     Active Substance: HYDROMORPHONE
     Dosage: 1 MG
     Route: 058
  34. HYDROMORPHONE [Suspect]
     Active Substance: HYDROMORPHONE
     Dosage: 1 MG
     Route: 058
  35. HYDROCORTISONE [Suspect]
     Active Substance: HYDROCORTISONE\HYDROCORTISONE ACETATE
     Indication: Angioedema
     Dosage: HYDROCORTISONE ACETATE
     Route: 065
  36. HYDROCORTISONE [Suspect]
     Active Substance: HYDROCORTISONE\HYDROCORTISONE ACETATE
     Indication: Product used for unknown indication
     Dosage: 100 MG
     Route: 065
  37. AMIODARONE HYDROCHLORIDE [Suspect]
     Active Substance: AMIODARONE HYDROCHLORIDE
     Indication: Ventricular fibrillation
     Dosage: 150 UG, QD
     Route: 042
  38. AMIODARONE HYDROCHLORIDE [Suspect]
     Active Substance: AMIODARONE HYDROCHLORIDE
     Indication: Off label use
     Dosage: 150 MG, QD
     Route: 065
  39. AMIODARONE HYDROCHLORIDE [Suspect]
     Active Substance: AMIODARONE HYDROCHLORIDE
     Indication: Product used for unknown indication
     Dosage: UNK, QD
     Route: 042
  40. AMIODARONE HYDROCHLORIDE [Suspect]
     Active Substance: AMIODARONE HYDROCHLORIDE
     Indication: Drug therapy
     Dosage: UNK, QD
     Route: 065
  41. AMIODARONE HYDROCHLORIDE [Suspect]
     Active Substance: AMIODARONE HYDROCHLORIDE
     Indication: Intentional product misuse
     Dosage: 150 UG, QD
     Route: 042
  42. AMIODARONE HYDROCHLORIDE [Suspect]
     Active Substance: AMIODARONE HYDROCHLORIDE
     Dosage: UNK, QD
     Route: 042
  43. AMIODARONE HYDROCHLORIDE [Suspect]
     Active Substance: AMIODARONE HYDROCHLORIDE
     Dosage: 150 MG, QD
     Route: 042
  44. AMIODARONE HYDROCHLORIDE [Suspect]
     Active Substance: AMIODARONE HYDROCHLORIDE
     Dosage: 150 UG, QD
     Route: 042
  45. AMIODARONE HYDROCHLORIDE [Suspect]
     Active Substance: AMIODARONE HYDROCHLORIDE
     Dosage: UNK, QD
     Route: 042
  46. AMIODARONE HYDROCHLORIDE [Suspect]
     Active Substance: AMIODARONE HYDROCHLORIDE
     Dosage: 150 UG, QD
     Route: 042
  47. AMIODARONE [Suspect]
     Active Substance: AMIODARONE
     Indication: Ventricular fibrillation
     Dosage: 150 MG, QD
     Route: 042
  48. AMIODARONE [Suspect]
     Active Substance: AMIODARONE
     Indication: Drug therapy
     Dosage: QD
     Route: 042
  49. AMIODARONE [Suspect]
     Active Substance: AMIODARONE
     Dosage: UNK
     Route: 065
  50. AMIODARONE [Suspect]
     Active Substance: AMIODARONE
     Dosage: UNK
     Route: 065
  51. AMIODARONE [Suspect]
     Active Substance: AMIODARONE
     Dosage: 150 MG, QD
     Route: 065
  52. AMIODARONE [Suspect]
     Active Substance: AMIODARONE
     Dosage: 150 MG
     Route: 042
  53. AMIODARONE [Suspect]
     Active Substance: AMIODARONE
     Dosage: UNK
     Route: 065
  54. ONDANSETRON [Suspect]
     Active Substance: ONDANSETRON
     Indication: Product used for unknown indication
     Dosage: 4 MG, TID
     Route: 042
  55. ONDANSETRON [Suspect]
     Active Substance: ONDANSETRON
     Indication: Vomiting
     Dosage: 1 DF, TID
     Route: 042
  56. ONDANSETRON [Suspect]
     Active Substance: ONDANSETRON
     Indication: Vomiting
     Dosage: UNK
     Route: 042
  57. ONDANSETRON [Suspect]
     Active Substance: ONDANSETRON
     Indication: Off label use
     Dosage: 24 MG
     Route: 065
  58. ONDANSETRON [Suspect]
     Active Substance: ONDANSETRON
     Dosage: 4 MG, TID
     Route: 042
  59. ONDANSETRON [Suspect]
     Active Substance: ONDANSETRON
     Dosage: 12 MG, TID
     Route: 042
  60. ONDANSETRON [Suspect]
     Active Substance: ONDANSETRON
     Dosage: 40 MG
     Route: 042
  61. ONDANSETRON [Suspect]
     Active Substance: ONDANSETRON
     Dosage: 40 MG
     Route: 042
  62. ONDANSETRON [Suspect]
     Active Substance: ONDANSETRON
     Dosage: 12 MG, TID
     Route: 042
  63. ONDANSETRON [Suspect]
     Active Substance: ONDANSETRON
     Dosage: 36 MG
     Route: 042
  64. ONDANSETRON [Suspect]
     Active Substance: ONDANSETRON
     Dosage: 36 MG
     Route: 042
  65. ONDANSETRON [Suspect]
     Active Substance: ONDANSETRON
     Dosage: UNK
     Route: 042
  66. ONDANSETRON [Suspect]
     Active Substance: ONDANSETRON
     Dosage: 41.14 MG
     Route: 042
  67. ONDANSETRON [Suspect]
     Active Substance: ONDANSETRON
     Dosage: 4 MG
     Route: 042
  68. ONDANSETRON [Suspect]
     Active Substance: ONDANSETRON
     Dosage: 12 MG
     Route: 065
  69. ONDANSETRON [Suspect]
     Active Substance: ONDANSETRON
     Dosage: 4 MG, QD
     Route: 042
  70. ONDANSETRON [Suspect]
     Active Substance: ONDANSETRON
     Dosage: 8 MG, TID
     Route: 042
  71. ONDANSETRON [Suspect]
     Active Substance: ONDANSETRON
     Dosage: 12 MG
     Route: 042
  72. ONDANSETRON [Suspect]
     Active Substance: ONDANSETRON
     Dosage: 1 DF
     Route: 042
  73. ALBUTEROL [Suspect]
     Active Substance: ALBUTEROL
     Indication: Product used for unknown indication
     Dosage: UNK
     Route: 065
  74. ALBUTEROL [Suspect]
     Active Substance: ALBUTEROL
     Indication: Chronic obstructive pulmonary disease
     Dosage: QD
     Route: 050
  75. ALBUTEROL [Suspect]
     Active Substance: ALBUTEROL
     Indication: Thrombosis
     Dosage: 2.5 ML, PRN (4GM/100ML SOLUTION UNASSIGNED)
     Route: 065
  76. ALBUTEROL [Suspect]
     Active Substance: ALBUTEROL
     Dosage: 4 DF, QD
     Route: 065
  77. ALBUTEROL [Suspect]
     Active Substance: ALBUTEROL
     Dosage: ROUTE OF ADMIN (FREE TEXT): RESPIRATORY (INHALATION)
     Route: 065
  78. ALBUTEROL [Suspect]
     Active Substance: ALBUTEROL
     Dosage: UNK
     Route: 050
  79. ALBUTEROL [Suspect]
     Active Substance: ALBUTEROL
     Dosage: 2.5 ML, QD
     Route: 065
  80. ALBUTEROL [Suspect]
     Active Substance: ALBUTEROL
     Dosage: 4 DF, QD
     Route: 065
  81. ALBUTEROL [Suspect]
     Active Substance: ALBUTEROL
     Dosage: UNK
     Route: 065
  82. ALBUTEROL [Suspect]
     Active Substance: ALBUTEROL
     Dosage: 1 DF, QID
     Route: 065
  83. ALBUTEROL [Suspect]
     Active Substance: ALBUTEROL
     Dosage: 2.5 ML
     Route: 065
  84. ALBUTEROL [Suspect]
     Active Substance: ALBUTEROL
     Dosage: ROUTE OF ADMIN (FREE TEXT): RESPIRATORY (INHALATION)
     Route: 065
  85. ALBUTEROL [Suspect]
     Active Substance: ALBUTEROL
     Dosage: 4 DOSAGE FORM, QD, (ROUTE OF ADMIN (FREE TEXT): RESPIRATORY (INHALATION))
     Route: 065
  86. XYLOMETAZOLINE [Suspect]
     Active Substance: XYLOMETAZOLINE
     Indication: Dyspnoea
     Dosage: UNK
     Route: 065

REACTIONS (9)
  - Ascites [Fatal]
  - Hyponatraemia [Fatal]
  - Blood phosphorus increased [Fatal]
  - Abdominal distension [Fatal]
  - Thrombosis [Fatal]
  - Dyspnoea [Fatal]
  - Drug therapy [Fatal]
  - Product use in unapproved indication [Fatal]
  - Off label use [Fatal]
